FAERS Safety Report 4453622-6 (Version None)
Quarter: 2004Q3

REPORT INFORMATION
  Report Type: 
  Country: None (occurrence: None)
  Receive Date: 20040902
  Receipt Date: 20040524
  Transmission Date: 20050211
  Serious: No
  Sender: FDA-Public Use
  Company Number: 200417982BWH

PATIENT
  Age: 43 Year
  Sex: Male
  Weight: 102.0593 kg

DRUGS (7)
  1. LEVITRA [Suspect]
     Dosage: 10 MG, PRN, ORAL
     Route: 048
     Dates: start: 20040518
  2. LEVITRA [Suspect]
     Dosage: 10 MG, PRN, ORAL
     Route: 048
     Dates: start: 20040519
  3. LEVITRA [Suspect]
     Dosage: 10 MG, PRN, ORAL
     Route: 048
     Dates: start: 20040520
  4. LEVITRA [Suspect]
     Dosage: 10 MG, PRN, ORAL
     Route: 048
     Dates: start: 20040521
  5. LEVITRA [Suspect]
     Dosage: 10 MG, PRN, ORAL
     Route: 048
     Dates: start: 20040522
  6. LEVITRA [Suspect]
     Dosage: 10 MG, PRN, ORAL
     Route: 048
     Dates: start: 20040523
  7. LEVITRA [Suspect]
     Dosage: 10 MG, PRN, ORAL
     Route: 048
     Dates: start: 20040524

REACTIONS (2)
  - LIBIDO INCREASED [None]
  - SPONTANEOUS PENILE ERECTION [None]
